FAERS Safety Report 9219359 (Version 2)
Quarter: 2013Q3

REPORT INFORMATION
  Report Type: Report from Study
  Country: US (occurrence: US)
  Receive Date: 20130409
  Receipt Date: 20130906
  Transmission Date: 20140515
  Serious: Yes (Other)
  Sender: FDA-Public Use
  Company Number: US-ELI_LILLY_AND_COMPANY-US201110003641

PATIENT
  Age: 76 Year
  Sex: Female

DRUGS (7)
  1. TERIPARATIDE [Suspect]
     Indication: OSTEOPOROSIS
     Dosage: 20 UG, QD
     Route: 058
     Dates: start: 201109
  2. TERIPARATIDE [Suspect]
     Dosage: 20 UG, QD
     Route: 058
  3. TERIPARATIDE [Suspect]
     Dosage: 20 UG, QD
     Route: 058
  4. TERIPARATIDE [Suspect]
     Dosage: 20 UG, QD
     Route: 058
  5. SINEMET [Suspect]
     Dosage: UNK, UNKNOWN
     Route: 065
  6. AZILECT [Suspect]
     Dosage: UNK, UNKNOWN
     Route: 065
  7. REQUIP [Suspect]
     Dosage: UNK, UNKNOWN
     Route: 065

REACTIONS (10)
  - Parkinson^s disease [Unknown]
  - Adverse drug reaction [Unknown]
  - Joint swelling [Unknown]
  - Fall [Unknown]
  - Balance disorder [Unknown]
  - Wrist fracture [Unknown]
  - Pain [Recovering/Resolving]
  - Muscle spasms [Recovered/Resolved]
  - Muscle spasms [Unknown]
  - Bone disorder [Unknown]
